FAERS Safety Report 16610949 (Version 1)
Quarter: 2019Q3

REPORT INFORMATION
  Report Type: Spontaneous
  Country: US (occurrence: US)
  Receive Date: 20190722
  Receipt Date: 20190722
  Transmission Date: 20191004
  Serious: Yes (Other)
  Sender: FDA-Public Use
  Company Number: US-FOUNDATIONCONSUMERHC-2019-US-007580

PATIENT
  Age: 27 Year
  Sex: Female
  Weight: 83.92 kg

DRUGS (1)
  1. TAKE ACTION [Suspect]
     Active Substance: LEVONORGESTREL
     Indication: POST COITAL CONTRACEPTION
     Dosage: 1.5 MG TAKEN ON 05-MAR, 10-MAR + 01-APR
     Route: 048
     Dates: start: 20190305, end: 20190401

REACTIONS (3)
  - Pregnancy after post coital contraception [Unknown]
  - Exposure during pregnancy [Recovered/Resolved]
  - Drug ineffective [Unknown]

NARRATIVE: CASE EVENT DATE: 201903
